FAERS Safety Report 20077270 (Version 1)
Quarter: 2021Q4

REPORT INFORMATION
  Report Type: Spontaneous
  Country: CN (occurrence: CN)
  Receive Date: 20211116
  Receipt Date: 20211116
  Transmission Date: 20220303
  Serious: Yes (Hospitalization)
  Sender: FDA-Public Use
  Company Number: CN-BAYER-2021A248774

PATIENT
  Age: 63 Year
  Sex: Female

DRUGS (2)
  1. GLUCOBAY [Suspect]
     Active Substance: ACARBOSE
     Indication: Diabetes mellitus
     Dosage: 50 MG, TID
     Route: 048
     Dates: end: 20211029
  2. METFORMIN HYDROCHLORIDE [Suspect]
     Active Substance: METFORMIN HYDROCHLORIDE
     Indication: Diabetes mellitus
     Dosage: 500 MG, TID
     Route: 048
     Dates: end: 20211029

REACTIONS (6)
  - Urinary tract infection [None]
  - Abdominal distension [Recovering/Resolving]
  - Epigastric discomfort [Recovering/Resolving]
  - Pollakiuria [None]
  - Micturition urgency [None]
  - Dysuria [None]

NARRATIVE: CASE EVENT DATE: 20211026
